FAERS Safety Report 18257137 (Version 1)
Quarter: 2020Q3

REPORT INFORMATION
  Report Type: Spontaneous
  Country: US (occurrence: US)
  Receive Date: 20200911
  Receipt Date: 20200911
  Transmission Date: 20201103
  Serious: Yes (Other)
  Sender: FDA-Public Use
  Company Number: None

PATIENT
  Age: 67 Year
  Sex: Male
  Weight: 85.5 kg

DRUGS (7)
  1. AMALODIPINE [Concomitant]
  2. IBRUPROPHIN [Concomitant]
  3. CELEBREX [Concomitant]
     Active Substance: CELECOXIB
  4. ALIVE [Concomitant]
  5. VITAMINS [Concomitant]
     Active Substance: VITAMINS
  6. LEXAPRO [Concomitant]
     Active Substance: ESCITALOPRAM OXALATE
  7. GRALISE [Suspect]
     Active Substance: GABAPENTIN
     Indication: NERVE COMPRESSION
     Dosage: ?          QUANTITY:1 TABLET(S);?
     Route: 048
     Dates: start: 20200909, end: 20200910

REACTIONS (4)
  - Dizziness [None]
  - Muscular weakness [None]
  - Sinus headache [None]
  - Headache [None]

NARRATIVE: CASE EVENT DATE: 20200909
